FAERS Safety Report 16851962 (Version 1)
Quarter: 2019Q3

REPORT INFORMATION
  Report Type: Spontaneous
  Country: US (occurrence: US)
  Receive Date: 20190925
  Receipt Date: 20190925
  Transmission Date: 20191005
  Serious: Yes (Other)
  Sender: FDA-Public Use
  Company Number: US-GILEAD-2019-0429428

PATIENT
  Age: 45 Year
  Sex: Female

DRUGS (1)
  1. VIREAD [Suspect]
     Active Substance: TENOFOVIR DISOPROXIL FUMARATE
     Indication: HIV INFECTION
     Dosage: UNK
     Route: 048
     Dates: start: 2003

REACTIONS (21)
  - Anxiety [Unknown]
  - Clavicle fracture [Unknown]
  - Social problem [Not Recovered/Not Resolved]
  - Pain [Not Recovered/Not Resolved]
  - Chronic kidney disease [Unknown]
  - Rib fracture [Unknown]
  - Emotional distress [Not Recovered/Not Resolved]
  - Osteoporosis [Unknown]
  - Hip fracture [Unknown]
  - Economic problem [Unknown]
  - Loss of employment [Unknown]
  - Forearm fracture [Unknown]
  - Loss of personal independence in daily activities [Not Recovered/Not Resolved]
  - Quality of life decreased [Not Recovered/Not Resolved]
  - Decreased activity [Not Recovered/Not Resolved]
  - Mobility decreased [Not Recovered/Not Resolved]
  - Personal relationship issue [Unknown]
  - Fatigue [Unknown]
  - Fine motor skill dysfunction [Not Recovered/Not Resolved]
  - Disturbance in attention [Unknown]
  - Anhedonia [Not Recovered/Not Resolved]
